FAERS Safety Report 8342372-1 (Version None)
Quarter: 2012Q2

REPORT INFORMATION
  Report Type: 
  Country: None (occurrence: None)
  Receive Date: 20120508
  Receipt Date: 20120430
  Transmission Date: 20120825
  Serious: Yes (Hospitalization)
  Sender: FDA-Public Use
  Company Number: US-BIOGENIDEC-2012BI010225

PATIENT
  Age: 30 Year
  Sex: Male

DRUGS (3)
  1. TYSABRI [Suspect]
     Indication: MULTIPLE SCLEROSIS
     Route: 042
     Dates: start: 20120207
  2. KEPPRA [Concomitant]
     Indication: CONVULSION
     Dates: start: 20090701
  3. TIZANIDINE [Concomitant]
     Indication: MUSCLE SPASMS

REACTIONS (1)
  - COMPLEX PARTIAL SEIZURES [None]
